FAERS Safety Report 6741700-8 (Version None)
Quarter: 2010Q2

REPORT INFORMATION
  Report Type: 
  Country: None (occurrence: None)
  Receive Date: 20100526
  Receipt Date: 20100514
  Transmission Date: 20101027
  Serious: Yes (Hospitalization, Disabling, Other)
  Sender: FDA-Public Use
  Company Number: US-WYE-H15196310

PATIENT
  Sex: Female
  Weight: 97.61 kg

DRUGS (7)
  1. PREMARIN [Suspect]
     Indication: HORMONE REPLACEMENT THERAPY
     Route: 048
     Dates: start: 20061001, end: 20100410
  2. LITHIUM CARBONATE [Concomitant]
     Indication: DEPRESSION
     Route: 048
  3. HYDROCHLOROTHIAZIDE [Concomitant]
     Indication: HYPERTENSION
     Route: 048
  4. INDERAL [Concomitant]
     Indication: HYPERTENSION
     Route: 048
  5. KLONOPIN [Concomitant]
     Indication: NERVOUSNESS
     Route: 065
  6. KLONOPIN [Concomitant]
     Indication: DEPRESSION
  7. CLARITIN [Concomitant]
     Indication: HYPERSENSITIVITY
     Route: 048

REACTIONS (21)
  - AMNESIA [None]
  - BALANCE DISORDER [None]
  - CEREBROVASCULAR ACCIDENT [None]
  - CONVULSION [None]
  - DEAFNESS [None]
  - DISTURBANCE IN ATTENTION [None]
  - DIZZINESS [None]
  - DYSKINESIA [None]
  - EYE DISORDER [None]
  - EYE PAIN [None]
  - FATIGUE [None]
  - HYPOAESTHESIA [None]
  - LIMB INJURY [None]
  - MENTAL DISORDER [None]
  - MUSCLE SPASMS [None]
  - NEPHROLITHIASIS [None]
  - PARAESTHESIA [None]
  - PARALYSIS [None]
  - THROMBOSIS [None]
  - VASCULAR OCCLUSION [None]
  - WEIGHT INCREASED [None]
